FAERS Safety Report 21876784 (Version 2)
Quarter: 2023Q1

REPORT INFORMATION
  Report Type: Report from Study
  Country: CA (occurrence: CA)
  Receive Date: 20230118
  Receipt Date: 20230119
  Transmission Date: 20230418
  Serious: Yes (Death, Hospitalization)
  Sender: FDA-Public Use
  Company Number: CA-ABBVIE-4273860

PATIENT
  Age: 89 Year
  Sex: Male

DRUGS (1)
  1. RINVOQ [Suspect]
     Active Substance: UPADACITINIB
     Indication: Dermatitis atopic
     Route: 048
     Dates: start: 20220131

REACTIONS (4)
  - Death [Fatal]
  - Fall [Unknown]
  - Haematoma [Unknown]
  - Limb injury [Unknown]

NARRATIVE: CASE EVENT DATE: 20230114
